FAERS Safety Report 8787964 (Version 4)
Quarter: 2012Q4

REPORT INFORMATION
  Report Type: 
  Country: CA (occurrence: CA)
  Receive Date: 20120914
  Receipt Date: 20121008
  Transmission Date: 20130627
  Serious: Yes (Hospitalization, Disabling, Other)
  Sender: FDA-Public Use
  Company Number: CA-PFIZER INC-2012225527

PATIENT
  Age: 50 Year
  Sex: Male

DRUGS (1)
  1. CHAMPIX [Suspect]
     Indication: SMOKING CESSATION THERAPY
     Dosage: starter pack
     Dates: start: 20120715, end: 20120801

REACTIONS (30)
  - Hypersensitivity [Not Recovered/Not Resolved]
  - Swollen tongue [Not Recovered/Not Resolved]
  - Dyspnoea [Not Recovered/Not Resolved]
  - Nervous system disorder [Not Recovered/Not Resolved]
  - Oral disorder [Not Recovered/Not Resolved]
  - Depression [Not Recovered/Not Resolved]
  - Impaired work ability [Not Recovered/Not Resolved]
  - Glossodynia [Not Recovered/Not Resolved]
  - Tongue spasm [Not Recovered/Not Resolved]
  - Pain of skin [Not Recovered/Not Resolved]
  - Paraesthesia [Not Recovered/Not Resolved]
  - Nausea [Not Recovered/Not Resolved]
  - Dizziness [Not Recovered/Not Resolved]
  - Abnormal dreams [Not Recovered/Not Resolved]
  - Insomnia [Not Recovered/Not Resolved]
  - General physical health deterioration [Not Recovered/Not Resolved]
  - Pain in jaw [Not Recovered/Not Resolved]
  - Oral pain [Not Recovered/Not Resolved]
  - Oropharyngeal pain [Not Recovered/Not Resolved]
  - Dysphagia [Not Recovered/Not Resolved]
  - Fatigue [Not Recovered/Not Resolved]
  - Disturbance in attention [Not Recovered/Not Resolved]
  - Tongue ulceration [Not Recovered/Not Resolved]
  - Mastication disorder [Not Recovered/Not Resolved]
  - Retching [Not Recovered/Not Resolved]
  - Vision blurred [Not Recovered/Not Resolved]
  - Dyskinesia [Not Recovered/Not Resolved]
  - Tongue paralysis [Not Recovered/Not Resolved]
  - Myasthenia gravis [Not Recovered/Not Resolved]
  - Dystonia [Not Recovered/Not Resolved]
